FAERS Safety Report 25764551 (Version 1)
Quarter: 2025Q3

REPORT INFORMATION
  Report Type: Spontaneous
  Country: US (occurrence: US)
  Receive Date: 20250905
  Receipt Date: 20250905
  Transmission Date: 20251021
  Serious: No
  Sender: DOMPE FARMACEUTICI
  Company Number: US-FARMAPROD-202501-0159

PATIENT
  Sex: Female

DRUGS (7)
  1. OXERVATE [Suspect]
     Active Substance: CENEGERMIN-BKBJ
     Indication: Neurotrophic keratopathy
     Route: 047
     Dates: start: 20241223
  2. OXERVATE [Suspect]
     Active Substance: CENEGERMIN-BKBJ
  3. COSOPT PF [Concomitant]
     Active Substance: DORZOLAMIDE HYDROCHLORIDE\TIMOLOL MALEATE
  4. REFRESH PLUS [Concomitant]
     Active Substance: CARBOXYMETHYLCELLULOSE SODIUM
  5. GENTEAL TEARS (MILD) [Concomitant]
     Active Substance: DEXTRAN 70\HYPROMELLOSE 2910 (4000 MPA.S)
  6. LOTEMAX [Concomitant]
     Active Substance: LOTEPREDNOL ETABONATE
  7. AMIODARONE HYDROCHLORIDE [Concomitant]
     Active Substance: AMIODARONE HYDROCHLORIDE

REACTIONS (2)
  - Eye pain [Recovered/Resolved]
  - Inappropriate schedule of product administration [Unknown]
